FAERS Safety Report 22085106 (Version 1)
Quarter: 2023Q1

REPORT INFORMATION
  Report Type: Report from Study
  Country: NL (occurrence: NL)
  Receive Date: 20230310
  Receipt Date: 20230310
  Transmission Date: 20230418
  Serious: Yes (Death)
  Sender: FDA-Public Use
  Company Number: NL-TEVA-2023-NL-2863908

PATIENT
  Age: 50 Year
  Sex: Female

DRUGS (1)
  1. AJOVY [Suspect]
     Active Substance: FREMANEZUMAB-VFRM
     Indication: Migraine
     Route: 058
     Dates: start: 20230210, end: 20230223

REACTIONS (1)
  - Accident [Fatal]

NARRATIVE: CASE EVENT DATE: 20230223
